FAERS Safety Report 9753855 (Version 2)
Quarter: 2015Q3

REPORT INFORMATION
  Report Type: Spontaneous
  Country: US (occurrence: US)
  Receive Date: 20131213
  Receipt Date: 20150805
  Transmission Date: 20151125
  Serious: No
  Sender: FDA-Public Use
  Company Number: US-GILEAD-2010-0027662

PATIENT
  Age: 54 Year
  Sex: Female

DRUGS (8)
  1. FUROSEMIDE. [Concomitant]
     Active Substance: FUROSEMIDE
  2. SPIRONOLACTONE. [Concomitant]
     Active Substance: SPIRONOLACTONE
  3. DIOVAN [Concomitant]
     Active Substance: VALSARTAN
  4. REVATIO [Concomitant]
     Active Substance: SILDENAFIL CITRATE
  5. OXYGEN. [Concomitant]
     Active Substance: OXYGEN
  6. TOPROL XL [Concomitant]
     Active Substance: METOPROLOL SUCCINATE
  7. POTASSIUM CHLORIDE. [Concomitant]
     Active Substance: POTASSIUM CHLORIDE
  8. LETAIRIS [Suspect]
     Active Substance: AMBRISENTAN
     Indication: PULMONARY ARTERIAL HYPERTENSION
     Route: 048
     Dates: start: 20100217

REACTIONS (3)
  - Heart rate increased [Unknown]
  - Feeling jittery [Unknown]
  - Headache [Unknown]
